FAERS Safety Report 9308880 (Version 1)
Quarter: 2013Q2

REPORT INFORMATION
  Report Type: Spontaneous
  Country: US (occurrence: US)
  Receive Date: 20130524
  Receipt Date: 20130524
  Transmission Date: 20140414
  Serious: Yes (Other)
  Sender: FDA-Public Use
  Company Number: US-OPTIMER-20130172

PATIENT
  Age: 68 Year
  Sex: Female

DRUGS (2)
  1. FIDAXOMICIN [Suspect]
     Indication: CLOSTRIDIUM DIFFICILE COLITIS
     Dosage: UNK
     Dates: start: 20111008, end: 20111017
  2. METRONIDAZOLE [Concomitant]
     Dosage: UNK
     Dates: start: 20111004, end: 20111009

REACTIONS (1)
  - White blood cell count increased [Unknown]
